FAERS Safety Report 7298466-5 (Version None)
Quarter: 2011Q1

REPORT INFORMATION
  Report Type: 
  Country: None (occurrence: None)
  Receive Date: 20110217
  Receipt Date: 20110216
  Transmission Date: 20110831
  Serious: Yes (Other)
  Sender: FDA-Public Use
  Company Number: US-JNJFOC-20101209193

PATIENT
  Sex: Female
  Weight: 61.24 kg

DRUGS (17)
  1. PAIN MEDICATION [Concomitant]
     Dosage: AT NIGHT
  2. REMICADE [Suspect]
     Dosage: 3RD INDUCTION DOSE; THEN EVERY 6-8 WEEKS
     Route: 042
  3. PROZAC [Suspect]
     Indication: PRODUCT USED FOR UNKNOWN INDICATION
     Dosage: 10 YEARS DURATION
  4. REMICADE [Suspect]
     Route: 042
  5. IRON [Concomitant]
  6. REMICADE [Suspect]
     Indication: COLITIS ULCERATIVE
     Dosage: 5 MG/KG; WEEK 2
     Route: 042
  7. MULTI-VITAMINS [Concomitant]
  8. CLARITIN [Concomitant]
     Indication: PREMEDICATION
  9. BENADRYL [Concomitant]
     Dosage: 25 MG EVENING PRIOR TO INFUSION
  10. ACIDOPHILUS [Concomitant]
  11. MICRONOR [Concomitant]
  12. DHA (PRENATAL VITAMINS/MINERALS/OMEGA-3 FATTY ACIDS) [Concomitant]
  13. TYLENOL [Concomitant]
     Indication: PREMEDICATION
  14. AMBIEN CR [Concomitant]
     Indication: SLEEP DISORDER
  15. XANAX [Concomitant]
     Indication: PANIC ATTACK
  16. PREDNISONE TAB [Suspect]
     Indication: PRODUCT USED FOR UNKNOWN INDICATION
  17. CALCIUM [Concomitant]

REACTIONS (2)
  - INFLUENZA LIKE ILLNESS [None]
  - PANIC ATTACK [None]
